FAERS Safety Report 7312709-0 (Version None)
Quarter: 2011Q1

REPORT INFORMATION
  Report Type: 
  Country: None (occurrence: None)
  Receive Date: 20110224
  Receipt Date: 20110214
  Transmission Date: 20110831
  Serious: Yes (Other)
  Sender: FDA-Public Use
  Company Number: US-BAYER-2011-014536

PATIENT
  Sex: Female
  Weight: 64 kg

DRUGS (2)
  1. BAYER EXTRA STRENGTH BACK + BODY PAIN [Suspect]
     Indication: ARTHRITIS
     Dosage: 1 DF, PRN
     Route: 048
     Dates: start: 20060101, end: 20100101
  2. ASPIRIN [Concomitant]

REACTIONS (3)
  - HAEMATOCHEZIA [None]
  - FAECES DISCOLOURED [None]
  - BLOOD COUNT ABNORMAL [None]
